FAERS Safety Report 18714118 (Version 2)
Quarter: 2021Q1

REPORT INFORMATION
  Report Type: Report from Study
  Country: DE (occurrence: DE)
  Receive Date: 20210107
  Receipt Date: 20210121
  Transmission Date: 20210419
  Serious: Yes (Death, Other)
  Sender: FDA-Public Use
  Company Number: DE-TAKEDA-2021TUS000055

PATIENT
  Age: 63 Year
  Sex: Male

DRUGS (2)
  1. HUMAN IMMUNOGLOBULIN; HYALURONIDASE [Suspect]
     Active Substance: HUMAN IMMUNOGLOBULIN G\HYALURONIDASE RECOMBINANT HUMAN
     Indication: HEREDITARY HAEMORRHAGIC TELANGIECTASIA
     Dosage: 20 GRAM, Q2WEEKS
     Route: 058
  2. HUMAN IMMUNOGLOBULIN; HYALURONIDASE [Suspect]
     Active Substance: HUMAN IMMUNOGLOBULIN G\HYALURONIDASE RECOMBINANT HUMAN
     Indication: NON-HODGKIN^S LYMPHOMA
     Dosage: 20 UNK
     Route: 058
     Dates: start: 20201025

REACTIONS (1)
  - Hereditary haemorrhagic telangiectasia [Fatal]

NARRATIVE: CASE EVENT DATE: 20201112
